FAERS Safety Report 17140706 (Version 3)
Quarter: 2020Q4

REPORT INFORMATION
  Report Type: Spontaneous
  Country: US (occurrence: US)
  Receive Date: 20191211
  Receipt Date: 20201105
  Transmission Date: 20210113
  Serious: Yes (Other)
  Sender: FDA-Public Use
  Company Number: US-GILEAD-2019-0441997

PATIENT
  Age: 50 Year
  Sex: Female
  Weight: 68.03 kg

DRUGS (72)
  1. COMBIVIR [Concomitant]
     Active Substance: LAMIVUDINE\ZIDOVUDINE
  2. ISENTRESS [Concomitant]
     Active Substance: RALTEGRAVIR POTASSIUM
  3. PROPOXYPHENE. [Concomitant]
     Active Substance: PROPOXYPHENE
  4. VYVANSE [Concomitant]
     Active Substance: LISDEXAMFETAMINE DIMESYLATE
  5. PREVACID [Concomitant]
     Active Substance: LANSOPRAZOLE
  6. BUSPIRONE HCL [Concomitant]
     Active Substance: BUSPIRONE HYDROCHLORIDE
  7. SERTRALINE [Concomitant]
     Active Substance: SERTRALINE HYDROCHLORIDE
  8. IOPHEN-C NR [Concomitant]
     Active Substance: CODEINE PHOSPHATE\GUAIFENESIN
  9. LANSOPRAZOLE. [Concomitant]
     Active Substance: LANSOPRAZOLE
  10. TEMAZEPAM. [Concomitant]
     Active Substance: TEMAZEPAM
  11. NASONEX [Concomitant]
     Active Substance: MOMETASONE FUROATE
  12. ATORVASTATIN [Concomitant]
     Active Substance: ATORVASTATIN
  13. TRUVADA [Suspect]
     Active Substance: EMTRICITABINE\TENOFOVIR DISOPROXIL FUMARATE
     Dosage: UNK
     Route: 048
     Dates: start: 20120319, end: 20121119
  14. TRUVADA [Suspect]
     Active Substance: EMTRICITABINE\TENOFOVIR DISOPROXIL FUMARATE
     Dosage: UNK
     Route: 048
     Dates: start: 2009, end: 2012
  15. TRUVADA [Suspect]
     Active Substance: EMTRICITABINE\TENOFOVIR DISOPROXIL FUMARATE
     Dosage: UNK
     Route: 048
     Dates: start: 2000, end: 2012
  16. KALETRA [Concomitant]
     Active Substance: LOPINAVIR\RITONAVIR
  17. LEXIVA [Concomitant]
     Active Substance: FOSAMPRENAVIR CALCIUM
  18. BUTALBITAL, ACETAMINOPHEN, AND CAFFEINE [Concomitant]
     Active Substance: ACETAMINOPHEN\BUTALBITAL\CAFFEINE
  19. METOPROLOL. [Concomitant]
     Active Substance: METOPROLOL
  20. TRUVADA [Suspect]
     Active Substance: EMTRICITABINE\TENOFOVIR DISOPROXIL FUMARATE
     Indication: HIV INFECTION
     Dosage: UNK
     Route: 048
     Dates: start: 20060313, end: 2006
  21. TIVICAY [Concomitant]
     Active Substance: DOLUTEGRAVIR SODIUM
  22. BETAMETHASONE CLO [Concomitant]
  23. SEROQUEL [Concomitant]
     Active Substance: QUETIAPINE FUMARATE
  24. ORTHO CYCLEN [Concomitant]
     Active Substance: ETHINYL ESTRADIOL\NORGESTIMATE
  25. HYDROXYZINE [Concomitant]
     Active Substance: HYDROXYZINE HYDROCHLORIDE
  26. VITAMIN D 2000 [Concomitant]
     Active Substance: VITAMIN D NOS
  27. ALENDRONATE SODIUM. [Concomitant]
     Active Substance: ALENDRONATE SODIUM
  28. RANITIDINE. [Concomitant]
     Active Substance: RANITIDINE
  29. TRAZODONE [Concomitant]
     Active Substance: TRAZODONE HYDROCHLORIDE
  30. PROTONIX [OMEPRAZOLE] [Concomitant]
     Active Substance: OMEPRAZOLE
  31. TRILEPTAL [Concomitant]
     Active Substance: OXCARBAZEPINE
  32. LISINOPRIL. [Concomitant]
     Active Substance: LISINOPRIL
  33. LUPRON DEPOT [Concomitant]
     Active Substance: LEUPROLIDE ACETATE
  34. CLONAZEPAM. [Concomitant]
     Active Substance: CLONAZEPAM
  35. BUPROPION. [Concomitant]
     Active Substance: BUPROPION
  36. VIRACEPT [Concomitant]
     Active Substance: NELFINAVIR MESYLATE
  37. PAXIL [Concomitant]
     Active Substance: PAROXETINE HYDROCHLORIDE
  38. ALPRAZOLAM. [Concomitant]
     Active Substance: ALPRAZOLAM
  39. HYDROCODONE [Concomitant]
     Active Substance: HYDROCODONE
  40. METHYLPREDNISOLONE. [Concomitant]
     Active Substance: METHYLPREDNISOLONE
  41. VALACYCLOVIR HCL [Concomitant]
     Active Substance: VALACYCLOVIR HYDROCHLORIDE
  42. ATRIPLA [Suspect]
     Active Substance: EFAVIRENZ\EMTRICITABINE\TENOFOVIR DISOPROXIL FUMARATE
     Indication: HIV INFECTION
     Dosage: UNK
     Route: 048
     Dates: start: 20060922, end: 200711
  43. NORVIR [Concomitant]
     Active Substance: RITONAVIR
  44. ALLEGRA [Concomitant]
     Active Substance: FEXOFENADINE HYDROCHLORIDE
  45. DICYCLOMINE CO [Concomitant]
  46. CLONIDINE HCL [Concomitant]
     Active Substance: CLONIDINE HYDROCHLORIDE
  47. STRATTERA [Concomitant]
     Active Substance: ATOMOXETINE HYDROCHLORIDE
  48. IBUPROFEN. [Concomitant]
     Active Substance: IBUPROFEN
  49. AMOXICILLIN. [Concomitant]
     Active Substance: AMOXICILLIN
  50. LORATADINE. [Concomitant]
     Active Substance: LORATADINE
  51. VENLAFAXINE [Concomitant]
     Active Substance: VENLAFAXINE HYDROCHLORIDE
  52. ATRIPLA [Suspect]
     Active Substance: EFAVIRENZ\EMTRICITABINE\TENOFOVIR DISOPROXIL FUMARATE
     Dosage: UNK
     Route: 048
     Dates: start: 2008, end: 2008
  53. VIREAD [Suspect]
     Active Substance: TENOFOVIR DISOPROXIL FUMARATE
     Indication: HIV INFECTION
     Dosage: UNK
     Route: 048
     Dates: start: 2010, end: 2019
  54. BIKTARVY [Concomitant]
     Active Substance: BICTEGRAVIR SODIUM\EMTRICITABINE\TENOFOVIR ALAFENAMIDE FUMARATE
  55. REYATAZ [Concomitant]
     Active Substance: ATAZANAVIR SULFATE
  56. ZYRTEC [Concomitant]
     Active Substance: CETIRIZINE HYDROCHLORIDE
  57. LAMICTAL [Concomitant]
     Active Substance: LAMOTRIGINE
  58. WELLBUTRIN [Concomitant]
     Active Substance: BUPROPION HYDROCHLORIDE
  59. SULFAMETHOXAZOLE [Concomitant]
     Active Substance: SULFAMETHOXAZOLE
  60. CYMBALTA [Concomitant]
     Active Substance: DULOXETINE HYDROCHLORIDE
  61. NEXIUM 1-2-3 [Concomitant]
     Active Substance: AMOXICILLIN\CLARITHROMYCIN\ESOMEPRAZOLE
  62. GABAPENTIN. [Concomitant]
     Active Substance: GABAPENTIN
  63. HYDROCHLOROTHIAZIDE. [Concomitant]
     Active Substance: HYDROCHLOROTHIAZIDE
  64. BONIVA [Concomitant]
     Active Substance: IBANDRONATE SODIUM
  65. COMPLERA [Suspect]
     Active Substance: EMTRICITABINE\RILPIVIRINE HYDROCHLORIDE\TENOFOVIR DISOPROXIL FUMARATE
     Indication: HIV INFECTION
     Dosage: UNK
     Route: 048
     Dates: start: 2012, end: 2015
  66. INTELENCE [Concomitant]
     Active Substance: ETRAVIRINE
  67. DESYREL [Concomitant]
     Active Substance: TRAZODONE HYDROCHLORIDE
  68. TRIAMCINOLONE [Concomitant]
     Active Substance: TRIAMCINOLONE
  69. POTASSIUM [Concomitant]
     Active Substance: POTASSIUM
  70. GEODON [Concomitant]
     Active Substance: ZIPRASIDONE HYDROCHLORIDE\ZIPRASIDONE MESYLATE
  71. FERATE [Concomitant]
  72. DEXTROAMPHET SACCHARAT, AMPHET ASPARTATE, DEXTROAMPHET SULFATE AND AMPHET SULFAT [Concomitant]
     Active Substance: AMPHETAMINE ASPARTATE\AMPHETAMINE SULFATE\DEXTROAMPHETAMINE SACCHARATE\DEXTROAMPHETAMINE SULFATE

REACTIONS (18)
  - Osteoporosis [Not Recovered/Not Resolved]
  - Chronic kidney disease [Not Recovered/Not Resolved]
  - Osteopenia [Not Recovered/Not Resolved]
  - Asthenia [Not Recovered/Not Resolved]
  - Loss of personal independence in daily activities [Not Recovered/Not Resolved]
  - Decreased activity [Not Recovered/Not Resolved]
  - Osteonecrosis [Unknown]
  - Renal failure [Unknown]
  - Nephropathy [Recovered/Resolved]
  - Economic problem [Not Recovered/Not Resolved]
  - Pain [Not Recovered/Not Resolved]
  - Bone loss [Unknown]
  - Emotional distress [Not Recovered/Not Resolved]
  - Anxiety [Not Recovered/Not Resolved]
  - Multiple fractures [Not Recovered/Not Resolved]
  - Bone density decreased [Unknown]
  - Quality of life decreased [Not Recovered/Not Resolved]
  - Anhedonia [Not Recovered/Not Resolved]

NARRATIVE: CASE EVENT DATE: 2016
